FAERS Safety Report 17212257 (Version 1)
Quarter: 2019Q4

REPORT INFORMATION
  Report Type: Spontaneous
  Country: US (occurrence: US)
  Receive Date: 20191230
  Receipt Date: 20191230
  Transmission Date: 20200122
  Serious: No
  Sender: FDA-Public Use
  Company Number: US-JNJFOC-20191243937

PATIENT
  Sex: Male
  Weight: 63.56 kg

DRUGS (1)
  1. WOMENS ROGAINE UNSCENTED [Suspect]
     Active Substance: MINOXIDIL
     Indication: ALOPECIA
     Dosage: HALF A CAP ONCE A DAY
     Route: 061

REACTIONS (4)
  - Application site irritation [Recovered/Resolved]
  - Application site rash [Recovered/Resolved]
  - Intentional product misuse [Unknown]
  - Product use issue [Unknown]
